FAERS Safety Report 8742509 (Version 2)
Quarter: 2012Q4

REPORT INFORMATION
  Report Type: 
  Country: US (occurrence: US)
  Receive Date: 20120824
  Receipt Date: 20121023
  Transmission Date: 20130627
  Serious: Yes (Other)
  Sender: FDA-Public Use
  Company Number: PHEH2012US016174

PATIENT
  Age: 68 Year
  Sex: Female

DRUGS (3)
  1. ILARIS [Suspect]
     Indication: URTICARIA
     Dosage: 180 mg, every 8 weeks
     Route: 058
     Dates: start: 20120714
  2. ILARIS [Suspect]
     Indication: CRYOPYRIN ASSOCIATED PERIODIC SYNDROME
  3. DIFLUCAN [Concomitant]

REACTIONS (8)
  - Urticaria [Not Recovered/Not Resolved]
  - Rash [Not Recovered/Not Resolved]
  - Pruritus [Not Recovered/Not Resolved]
  - Insomnia [Unknown]
  - Oropharyngeal pain [Unknown]
  - Pyrexia [Unknown]
  - Rhinorrhoea [Unknown]
  - Dizziness [Unknown]
